FAERS Safety Report 10661149 (Version 2)
Quarter: 2014Q4

REPORT INFORMATION
  Report Type: Spontaneous
  Country: US (occurrence: US)
  Receive Date: 20141218
  Receipt Date: 20141224
  Transmission Date: 20150529
  Serious: Yes (Other)
  Sender: FDA-Public Use
  Company Number: US-GILEAD-2014-0127581

PATIENT
  Age: 75 Year
  Sex: Male

DRUGS (2)
  1. LETAIRIS [Suspect]
     Active Substance: AMBRISENTAN
     Indication: PRODUCT USED FOR UNKNOWN INDICATION
     Dosage: 10 MG, QD
     Route: 065
     Dates: start: 201202
  2. TYVASO [Concomitant]
     Active Substance: TREPROSTINIL

REACTIONS (9)
  - Pulmonary arterial hypertension [Unknown]
  - Gait disturbance [Unknown]
  - Fistula repair [Unknown]
  - Asthenia [Unknown]
  - Hypotension [Unknown]
  - Dialysis [Unknown]
  - Syncope [Unknown]
  - Fatigue [Unknown]
  - Dyspnoea [Unknown]

NARRATIVE: CASE EVENT DATE: 20141218
